FAERS Safety Report 17650736 (Version 4)
Quarter: 2023Q4

REPORT INFORMATION
  Report Type: Report from Study
  Country: US (occurrence: US)
  Receive Date: 20200408
  Receipt Date: 20231116
  Transmission Date: 20240109
  Serious: Yes (Hospitalization, Other)
  Sender: FDA-Public Use
  Company Number: US-TAKEDA-2020TUS017581

PATIENT
  Sex: Male

DRUGS (4)
  1. BRIGATINIB [Suspect]
     Active Substance: BRIGATINIB
     Indication: Lung neoplasm malignant
     Dosage: 90 MILLIGRAM
     Route: 048
  2. BRIGATINIB [Suspect]
     Active Substance: BRIGATINIB
     Indication: Metastases to liver
     Dosage: 180 MILLIGRAM
     Route: 048
  3. BRIGATINIB [Suspect]
     Active Substance: BRIGATINIB
     Indication: Cholangiocarcinoma
     Dosage: 150 MILLIGRAM, QD
     Route: 065
     Dates: start: 20200316
  4. BRIGATINIB [Suspect]
     Active Substance: BRIGATINIB
     Indication: Metastases to adrenals
     Dosage: 90 MILLIGRAM, QD
     Route: 048

REACTIONS (4)
  - Starvation [Unknown]
  - Infection [Unknown]
  - Product dose omission issue [Unknown]
  - Off label use [Unknown]
